FAERS Safety Report 19807040 (Version 1)
Quarter: 2021Q3

REPORT INFORMATION
  Report Type: Spontaneous
  Country: US (occurrence: US)
  Receive Date: 20210908
  Receipt Date: 20210908
  Transmission Date: 20211014
  Serious: No
  Sender: FDA-Public Use
  Company Number: US-AMERICAN REGENT INC-2021000147

PATIENT
  Age: 9 Decade
  Sex: Male

DRUGS (1)
  1. INJECTAFER [Suspect]
     Active Substance: FERRIC CARBOXYMALTOSE
     Indication: PRODUCT USED FOR UNKNOWN INDICATION
     Dosage: 1ST INJECTAFER INFUSION
     Route: 042
     Dates: start: 20210108, end: 20210108

REACTIONS (2)
  - Bladder discomfort [Unknown]
  - Haematuria [Unknown]

NARRATIVE: CASE EVENT DATE: 20210108
